FAERS Safety Report 21722975 (Version 2)
Quarter: 2022Q4

REPORT INFORMATION
  Report Type: Report from Study
  Country: FR (occurrence: None)
  Receive Date: 20221213
  Receipt Date: 20221220
  Transmission Date: 20230113
  Serious: Yes (Hospitalization)
  Sender: FDA-Public Use
  Company Number: 2022A398463

PATIENT
  Age: 51 Year
  Sex: Female
  Weight: 57.3 kg

DRUGS (3)
  1. DURVALUMAB [Suspect]
     Active Substance: DURVALUMAB
     Indication: Neoplasm
     Route: 042
     Dates: start: 20221108, end: 20221108
  2. TREMELIMUMAB [Suspect]
     Active Substance: TREMELIMUMAB
     Indication: Neoplasm
     Route: 042
     Dates: start: 20221108, end: 20221108
  3. OLAPARIB [Suspect]
     Active Substance: OLAPARIB
     Indication: Neoplasm
     Route: 048
     Dates: start: 20220921, end: 20221108

REACTIONS (1)
  - Cell death [Not Recovered/Not Resolved]

NARRATIVE: CASE EVENT DATE: 20221130
